FAERS Safety Report 10533707 (Version 1)
Quarter: 2014Q4

REPORT INFORMATION
  Report Type: Spontaneous
  Country: US (occurrence: None)
  Receive Date: 20141021
  Receipt Date: 20141021
  Transmission Date: 20150529
  Serious: Yes (Other)
  Sender: FDA-Public Use
  Company Number: None

PATIENT
  Age: 69 Year
  Sex: Female

DRUGS (12)
  1. POTASSIUM CHLORIDE (K-TAB) [Concomitant]
  2. NORTRIPTYLINE (AVENTYL/PAMELOR) [Concomitant]
  3. HYDROCHLOROTHIAZIDE (ESIDRIX/HYDRODIURIL) [Concomitant]
  4. AMPYRA [Suspect]
     Active Substance: DALFAMPRIDINE
     Indication: MULTIPLE SCLEROSIS
     Route: 048
     Dates: start: 201106
  5. DULOXETINE (CYMABLATA) [Concomitant]
  6. EZETIMIBE (ZETIA) [Concomitant]
  7. METHYLPHENIDATE (RITALIN) [Concomitant]
  8. AMLODIPINE (NORVASC) [Concomitant]
  9. CALCIUM CITRATE-VITAMIN D3 (CITRUS CALCIUM) [Concomitant]
  10. ALENDRONATE (FOSAMAX) [Concomitant]
  11. LISINOPRIL (PRINIVIL/ZESTRIL) [Concomitant]
  12. FAMOTIDINE (PEPCID) [Concomitant]

REACTIONS (3)
  - Trigeminal neuralgia [None]
  - Pain in jaw [None]
  - Ear pain [None]

NARRATIVE: CASE EVENT DATE: 20140825
